FAERS Safety Report 11213105 (Version 2)
Quarter: 2015Q3

REPORT INFORMATION
  Report Type: Report from Study
  Country: JP (occurrence: JP)
  Receive Date: 20150623
  Receipt Date: 20150724
  Transmission Date: 20151125
  Serious: Yes (Hospitalization)
  Sender: FDA-Public Use
  Company Number: JP-EISAI MEDICAL RESEARCH-EC-2015-007769

PATIENT
  Age: 49 Year
  Sex: Male

DRUGS (1)
  1. LENVIMA [Suspect]
     Active Substance: LENVATINIB
     Indication: MEDULLARY THYROID CANCER
     Route: 048
     Dates: start: 20150610, end: 20150612

REACTIONS (1)
  - Melaena [Recovered/Resolved]

NARRATIVE: CASE EVENT DATE: 20150612
